FAERS Safety Report 4607740-X (Version None)
Quarter: 2005Q1

REPORT INFORMATION
  Report Type: 
  Country: None (occurrence: None)
  Receive Date: 20050309
  Receipt Date: 20050225
  Transmission Date: 20050727
  Serious: Yes (Other)
  Sender: FDA-Public Use
  Company Number: DSA_25695_2005

PATIENT
  Age: 47 Year
  Sex: Male

DRUGS (2)
  1. ENALAPRIL MALEATE AND HYDROCHLOROTHIAZIDE [Suspect]
     Indication: HYPERTENSION
     Dosage: 1 TAB QD PO
     Route: 048
     Dates: start: 20010101, end: 20041215
  2. SLIDENAFIL CITRATE [Concomitant]

REACTIONS (2)
  - BLOOD CREATINE INCREASED [None]
  - RHABDOMYOLYSIS [None]
